FAERS Safety Report 18386164 (Version 4)
Quarter: 2023Q1

REPORT INFORMATION
  Report Type: Spontaneous
  Country: US (occurrence: US)
  Receive Date: 20201015
  Receipt Date: 20230130
  Transmission Date: 20230417
  Serious: Yes (Hospitalization, Other)
  Sender: FDA-Public Use
  Company Number: US-PFIZER INC-2020396837

PATIENT
  Age: 56 Year
  Sex: Female

DRUGS (1)
  1. XELJANZ XR [Suspect]
     Active Substance: TOFACITINIB CITRATE
     Dosage: 11 MG
     Dates: start: 20201110

REACTIONS (6)
  - Spinal operation [Unknown]
  - Fall [Unknown]
  - Intervertebral disc injury [Unknown]
  - Drug ineffective [Unknown]
  - Arthritis [Not Recovered/Not Resolved]
  - COVID-19 [Unknown]
